FAERS Safety Report 16549013 (Version 2)
Quarter: 2019Q3

REPORT INFORMATION
  Report Type: Report from Study
  Country: US (occurrence: US)
  Receive Date: 20190709
  Receipt Date: 20190807
  Transmission Date: 20191004
  Serious: Yes (Hospitalization)
  Sender: FDA-Public Use
  Company Number: US-ACTELION-A-US2019-191660

PATIENT
  Age: 72 Year
  Sex: Male

DRUGS (1)
  1. OPSUMIT [Suspect]
     Active Substance: MACITENTAN
     Indication: PULMONARY ARTERIAL HYPERTENSION
     Dosage: UNK MG, QD
     Route: 048
     Dates: start: 20190504, end: 20190626

REACTIONS (21)
  - Blood pressure decreased [Unknown]
  - Hypovolaemia [Unknown]
  - Unevaluable event [Unknown]
  - Ileus [Recovering/Resolving]
  - Large intestinal obstruction [Recovering/Resolving]
  - Hallucination [Not Recovered/Not Resolved]
  - Body temperature increased [Not Recovered/Not Resolved]
  - Nausea [Unknown]
  - Seizure like phenomena [Unknown]
  - Sepsis [Unknown]
  - Abdominal distension [Not Recovered/Not Resolved]
  - Pneumoperitoneum [Not Recovered/Not Resolved]
  - Allergic eosinophilia [Not Recovered/Not Resolved]
  - Pruritus [Not Recovered/Not Resolved]
  - Hypotension [Unknown]
  - Diarrhoea [Not Recovered/Not Resolved]
  - Orthostatic hypotension [Unknown]
  - Arteriovenous fistula operation [Unknown]
  - Ascites [Not Recovered/Not Resolved]
  - Ileostomy [Not Recovered/Not Resolved]
  - End stage renal disease [Unknown]

NARRATIVE: CASE EVENT DATE: 2019
